FAERS Safety Report 7755940-2 (Version None)
Quarter: 2011Q3

REPORT INFORMATION
  Report Type: 
  Country: None (occurrence: None)
  Receive Date: 20110916
  Receipt Date: 20100510
  Transmission Date: 20111222
  Serious: No
  Sender: FDA-Public Use
  Company Number: US-BAYER-201023331NA

PATIENT
  Sex: Female

DRUGS (1)
  1. MIRENA [Suspect]

REACTIONS (5)
  - MEDICAL DEVICE COMPLICATION [None]
  - GASTRIC DISORDER [None]
  - NAUSEA [None]
  - BACK PAIN [None]
  - ABDOMINAL TENDERNESS [None]
